FAERS Safety Report 7019078-4 (Version None)
Quarter: 2010Q3

REPORT INFORMATION
  Report Type: 
  Country: None (occurrence: None)
  Receive Date: 20100928
  Receipt Date: 20100920
  Transmission Date: 20110219
  Serious: Yes (Hospitalization)
  Sender: FDA-Public Use
  Company Number: A0883375A

PATIENT
  Age: 29 Year
  Sex: Female

DRUGS (1)
  1. PAXIL CR [Suspect]
     Indication: DEPRESSION
     Dosage: 25MG PER DAY
     Route: 065
     Dates: end: 20100901

REACTIONS (2)
  - NEUROLEPTIC MALIGNANT SYNDROME [None]
  - TONIC CONVULSION [None]
